FAERS Safety Report 16680072 (Version 1)
Quarter: 2019Q3

REPORT INFORMATION
  Report Type: Spontaneous
  Country: PT (occurrence: PT)
  Receive Date: 20190807
  Receipt Date: 20190807
  Transmission Date: 20191004
  Serious: Yes (Hospitalization)
  Sender: FDA-Public Use
  Company Number: PT-MYLANLABS-2019M1073145

PATIENT
  Age: 55 Year
  Sex: Female

DRUGS (1)
  1. CIPROFLOXACIN. [Suspect]
     Active Substance: CIPROFLOXACIN
     Indication: GASTROINTESTINAL INFECTION
     Dosage: UNK

REACTIONS (8)
  - Paraparesis [Unknown]
  - Extensor plantar response [Unknown]
  - Hereditary haemorrhagic telangiectasia [Unknown]
  - Paraesthesia [Unknown]
  - Acute respiratory failure [Unknown]
  - Urinary retention [Unknown]
  - Motor dysfunction [Unknown]
  - Autonomic nervous system imbalance [Unknown]
